FAERS Safety Report 7874873-4 (Version None)
Quarter: 2011Q4

REPORT INFORMATION
  Report Type: 
  Country: None (occurrence: None)
  Receive Date: 20111031
  Receipt Date: 20111020
  Transmission Date: 20120403
  Serious: Yes (Hospitalization)
  Sender: FDA-Public Use
  Company Number: US-BAYER-2011-024371

PATIENT
  Age: 25 Year
  Sex: Female
  Weight: 62.132 kg

DRUGS (2)
  1. YASMIN [Suspect]
     Indication: CONTRACEPTION
     Dosage: UNK
     Dates: start: 20050601, end: 20060501
  2. YASMIN [Suspect]
     Indication: ACNE
     Dosage: UNK
     Dates: start: 20060801, end: 20070201

REACTIONS (8)
  - PHYSICAL DISABILITY [None]
  - DYSPNOEA [None]
  - EMOTIONAL DISTRESS [None]
  - CHEST PAIN [None]
  - PULMONARY EMBOLISM [None]
  - PAIN [None]
  - ANXIETY [None]
  - INJURY [None]
